FAERS Safety Report 7734925-6 (Version None)
Quarter: 2011Q3

REPORT INFORMATION
  Report Type: 
  Country: None (occurrence: None)
  Receive Date: 20110907
  Receipt Date: 20110901
  Transmission Date: 20111222
  Serious: Yes (Hospitalization)
  Sender: FDA-Public Use
  Company Number: PHHY2011FR78420

PATIENT
  Age: 85 Year
  Sex: Male

DRUGS (3)
  1. PULMICORT [Concomitant]
     Indication: ASTHMA
  2. INDAPAMIDE [Concomitant]
     Indication: HYPERTENSION
  3. FORADIL [Suspect]
     Indication: ASTHMA
     Dosage: 1 DF, BID

REACTIONS (8)
  - HYPONATRAEMIA [None]
  - ASTHENIA [None]
  - VOMITING [None]
  - MUSCULAR WEAKNESS [None]
  - DIZZINESS [None]
  - HYPERTENSION [None]
  - CEREBRAL INFARCTION [None]
  - HYPOKALAEMIA [None]
